FAERS Safety Report 8920775 (Version 8)
Quarter: 2013Q4

REPORT INFORMATION
  Report Type: Report from Study
  Country: BR (occurrence: BR)
  Receive Date: 20121121
  Receipt Date: 20131217
  Transmission Date: 20140711
  Serious: Yes (Other)
  Sender: FDA-Public Use
  Company Number: BR-ROCHE-1088842

PATIENT
  Age: 26 Year
  Sex: Female
  Weight: 79 kg

DRUGS (14)
  1. RITUXIMAB [Suspect]
     Indication: B-CELL LYMPHOMA
     Dosage: DATE OF LAST DOSE PRIOR TO SAE: 25/JUL/2012
     Route: 042
     Dates: start: 20120711
  2. RHUPH20/RITUXIMAB [Suspect]
     Indication: B-CELL LYMPHOMA
     Route: 058
     Dates: start: 20120725
  3. RHUPH20/RITUXIMAB [Suspect]
     Route: 058
     Dates: start: 20121107
  4. RHUPH20/RITUXIMAB [Suspect]
     Route: 058
     Dates: start: 20120808
  5. RHUPH20/RITUXIMAB [Suspect]
     Route: 058
     Dates: start: 20120903
  6. RHUPH20/RITUXIMAB [Suspect]
     Route: 058
     Dates: start: 20121017
  7. RHUPH20/RITUXIMAB [Suspect]
     Route: 058
     Dates: start: 20121003
  8. RHUPH20/RITUXIMAB [Suspect]
     Route: 058
     Dates: start: 20130103
  9. RHUPH20/RITUXIMAB [Suspect]
     Route: 058
     Dates: start: 20130130
  10. RHUPH20/RITUXIMAB [Suspect]
     Route: 058
     Dates: start: 20121204
  11. RHUPH20/RITUXIMAB [Suspect]
     Dosage: DATE OF LAST DOSE PRIOR TO SAE: 07/NOV/2013
     Route: 058
     Dates: start: 20131107
  12. LEVOFLOXACIN [Concomitant]
     Indication: URINARY TRACT INFECTION
     Route: 065
     Dates: start: 20130412, end: 20130422
  13. LEVOFLOXACIN [Concomitant]
     Route: 065
     Dates: start: 20130605, end: 20130612
  14. NIMESULIDE [Concomitant]
     Route: 065
     Dates: start: 20130429, end: 20130503

REACTIONS (3)
  - Injection site swelling [Recovered/Resolved]
  - Hypersensitivity [Recovered/Resolved]
  - Injection site reaction [Recovered/Resolved]
